FAERS Safety Report 9968377 (Version 1)
Quarter: 2014Q1

REPORT INFORMATION
  Report Type: Report from Study
  Country: US (occurrence: US)
  Receive Date: 20140306
  Receipt Date: 20140306
  Transmission Date: 20141002
  Serious: No
  Sender: FDA-Public Use
  Company Number: US-ABBVIE-13P-163-1140537-00

PATIENT
  Age: 58 Year
  Sex: Male

DRUGS (6)
  1. HUMIRA [Suspect]
     Indication: PSORIASIS
     Dates: start: 20130823
  2. NAPROSYN [Concomitant]
     Indication: MUSCULOSKELETAL PAIN
  3. NAPROSYN [Concomitant]
     Indication: ARTHRALGIA
  4. OXYCODONE [Concomitant]
     Indication: MUSCULOSKELETAL PAIN
  5. OXYCODONE [Concomitant]
     Indication: ARTHRALGIA
  6. ANTIDEPRESSANT [Concomitant]
     Indication: PRODUCT USED FOR UNKNOWN INDICATION

REACTIONS (5)
  - Wrong technique in drug usage process [Recovered/Resolved]
  - Incorrect dose administered [Recovered/Resolved]
  - Injection site pain [Recovered/Resolved]
  - Drug administration error [Recovered/Resolved]
  - Nervousness [Recovered/Resolved]
